FAERS Safety Report 5492444-4 (Version None)
Quarter: 2007Q4

REPORT INFORMATION
  Report Type: 
  Country: None (occurrence: None)
  Receive Date: 20071015
  Receipt Date: 20070730
  Transmission Date: 20080405
  Serious: No
  Sender: FDA-Public Use
  Company Number: 2007SP002687

PATIENT
  Age: 59 Year
  Sex: Female

DRUGS (7)
  1. LUNESTA [Suspect]
     Dosage: 2 MG ORAL; 3 MG ORAL
     Route: 048
     Dates: start: 20070701, end: 20070701
  2. LUNESTA [Suspect]
     Dosage: 2 MG ORAL; 3 MG ORAL
     Route: 048
     Dates: start: 20070717, end: 20070701
  3. ESTROGEN NOS [Concomitant]
  4. LEVOTHYROXINE SODIUM [Concomitant]
  5. DARVOCET [Concomitant]
  6. IBANDRONATE SODIUM [Concomitant]
  7. SOMA [Concomitant]

REACTIONS (1)
  - PARADOXICAL DRUG REACTION [None]
